FAERS Safety Report 19654305 (Version 3)
Quarter: 2021Q4

REPORT INFORMATION
  Report Type: Spontaneous
  Country: US (occurrence: US)
  Receive Date: 20210804
  Receipt Date: 20211102
  Transmission Date: 20220303
  Serious: Yes (Hospitalization, Other)
  Sender: FDA-Public Use
  Company Number: US-BOEHRINGERINGELHEIM-2021-BI-119363

PATIENT
  Age: 85 Year
  Sex: Female

DRUGS (1)
  1. PRADAXA [Suspect]
     Active Substance: DABIGATRAN ETEXILATE MESYLATE
     Indication: Cerebrovascular accident prophylaxis
     Dosage: 1 PILL TWICE DAILY
     Dates: start: 202107, end: 20210827

REACTIONS (4)
  - Gastric haemorrhage [Recovering/Resolving]
  - Fatigue [Not Recovered/Not Resolved]
  - Faeces discoloured [Unknown]
  - Dizziness [Unknown]

NARRATIVE: CASE EVENT DATE: 20210701
